FAERS Safety Report 5207357-2 (Version None)
Quarter: 2007Q1

REPORT INFORMATION
  Report Type: 
  Country: None (occurrence: None)
  Receive Date: 20070110
  Receipt Date: 20061225
  Transmission Date: 20070707
  Serious: Yes (Other)
  Sender: FDA-Public Use
  Company Number: 2004JP001330

PATIENT
  Age: 26 Year
  Sex: Male
  Weight: 30 kg

DRUGS (10)
  1. PROGRAF [Suspect]
     Indication: RENAL TRANSPLANT
     Dosage: SEE IMAGE
     Dates: start: 20040629, end: 20040703
  2. PROGRAF [Suspect]
     Indication: RENAL TRANSPLANT
     Dosage: SEE IMAGE
     Dates: start: 20040704, end: 20040711
  3. PROGRAF [Suspect]
     Indication: RENAL TRANSPLANT
     Dosage: SEE IMAGE
     Dates: start: 20040712
  4. SOLU-MEDROL [Concomitant]
  5. SIMULECT [Concomitant]
  6. CELLCEPT [Concomitant]
  7. NEORAL CAPSULE [Concomitant]
  8. TAZOCIN (PIPERACILLIN SODIUM, TAZOBACTAM SODIUM) INJECTION [Concomitant]
  9. CEFAMEZIN (CEFAZOLIN) INJECTION [Concomitant]
  10. PLETAAL (CILOSTAZOL) TABLET [Concomitant]

REACTIONS (1)
  - LEUKOENCEPHALOPATHY [None]
